FAERS Safety Report 7921095-4 (Version None)
Quarter: 2011Q4

REPORT INFORMATION
  Report Type: 
  Country: None (occurrence: None)
  Receive Date: 20111117
  Receipt Date: 20111110
  Transmission Date: 20120403
  Serious: Yes (Death, Hospitalization, Disabling, Other)
  Sender: FDA-Public Use
  Company Number: MY-CELGENEUS-101-21880-11080849

PATIENT
  Sex: Male

DRUGS (10)
  1. VELCADE [Concomitant]
     Route: 041
     Dates: start: 20110722
  2. AMLODIPINE [Concomitant]
     Dosage: 5 MILLIGRAM
     Route: 065
  3. DEXAMETHASONE [Concomitant]
     Route: 065
     Dates: start: 20110617
  4. BACTRIM [Concomitant]
     Route: 065
  5. REVLIMID [Suspect]
     Indication: MULTIPLE MYELOMA
     Dosage: 10 MILLIEQUIVALENTS
     Route: 048
     Dates: start: 20110617, end: 20110702
  6. VELCADE [Concomitant]
     Route: 041
     Dates: start: 20110617, end: 20110702
  7. ACYCLOVIR [Concomitant]
     Route: 065
  8. VELCADE [Concomitant]
     Indication: MULTIPLE MYELOMA
     Route: 065
     Dates: start: 20110406
  9. DEXAMETHASONE [Concomitant]
     Indication: MULTIPLE MYELOMA
     Route: 065
     Dates: start: 20110406
  10. ZANTAC [Concomitant]
     Route: 065

REACTIONS (11)
  - SEPTIC SHOCK [None]
  - BUNDLE BRANCH BLOCK RIGHT [None]
  - MULTIPLE MYELOMA [None]
  - PNEUMONIA KLEBSIELLA [None]
  - BRONCHOPNEUMONIA [None]
  - MULTI-ORGAN FAILURE [None]
  - SINUS TACHYCARDIA [None]
  - OEDEMA PERIPHERAL [None]
  - HYPOXIA [None]
  - FALL [None]
  - RENAL FAILURE ACUTE [None]
